FAERS Safety Report 10644466 (Version 2)
Quarter: 2014Q4

REPORT INFORMATION
  Report Type: Spontaneous
  Country: JP (occurrence: JP)
  Receive Date: 20141210
  Receipt Date: 20141210
  Transmission Date: 20150529
  Serious: Yes (Other)
  Sender: FDA-Public Use
  Company Number: JP-GLAXOSMITHKLINE-B0860750A

PATIENT
  Age: 17 Year
  Sex: Male

DRUGS (2)
  1. METHOTREXATE [Suspect]
     Active Substance: METHOTREXATE
     Indication: T-CELL TYPE ACUTE LEUKAEMIA
     Route: 042
     Dates: start: 20080828
  2. ARRANON [Suspect]
     Active Substance: NELARABINE
     Route: 041
     Dates: start: 20080602

REACTIONS (1)
  - Leukoencephalopathy [Recovering/Resolving]

NARRATIVE: CASE EVENT DATE: 20080927
